FAERS Safety Report 8938298 (Version 1)
Quarter: 2012Q4

REPORT INFORMATION
  Report Type: 
  Country: US (occurrence: US)
  Receive Date: 20121130
  Receipt Date: 20121130
  Transmission Date: 20130627
  Serious: Yes (Other)
  Sender: FDA-Public Use
  Company Number: US-GLAXOSMITHKLINE-A1003172A

PATIENT
  Age: 69 Year
  Sex: Male

DRUGS (2)
  1. TUMS [Suspect]
     Indication: DYSPEPSIA
  2. GAVISCON REGULAR STRENGTH [Suspect]
     Indication: DYSPEPSIA
     Route: 048
     Dates: end: 20121126

REACTIONS (2)
  - Haematochezia [Not Recovered/Not Resolved]
  - Hiccups [Not Recovered/Not Resolved]
